FAERS Safety Report 23426366 (Version 1)
Quarter: 2024Q1

REPORT INFORMATION
  Report Type: Spontaneous
  Country: US (occurrence: US)
  Receive Date: 20240122
  Receipt Date: 20240122
  Transmission Date: 20240409
  Serious: Yes (Hospitalization)
  Sender: FDA-Public Use
  Company Number: US-ORG100016242-2024000021

PATIENT
  Age: 78 Year
  Sex: Female

DRUGS (1)
  1. ZILRETTA [Suspect]
     Active Substance: TRIAMCINOLONE ACETONIDE
     Indication: Arthralgia
     Dosage: 1 INJECTION IN THE RIGHT KNEE EVERY 4 TO 6 MONTHS APPROXIMATELY
     Route: 050
     Dates: start: 20240111, end: 20240111

REACTIONS (6)
  - White blood cell count increased [Unknown]
  - Joint stiffness [Not Recovered/Not Resolved]
  - Joint effusion [Unknown]
  - Osteoarthritis [Not Recovered/Not Resolved]
  - Joint swelling [Not Recovered/Not Resolved]
  - Arthralgia [Not Recovered/Not Resolved]

NARRATIVE: CASE EVENT DATE: 20240113
